FAERS Safety Report 5200922-8 (Version None)
Quarter: 2007Q1

REPORT INFORMATION
  Report Type: 
  Country: None (occurrence: None)
  Receive Date: 20070103
  Receipt Date: 20061221
  Transmission Date: 20070707
  Serious: Yes (Death, Hospitalization)
  Sender: FDA-Public Use
  Company Number: 2006SP008358

PATIENT
  Age: 53 Year
  Sex: Female
  Weight: 60 kg

DRUGS (6)
  1. PEG-INTRON [Suspect]
     Indication: HEPATITIS C
     Dosage: 80 MCG, QW; SC, 50 MCG, QW, SC
     Route: 058
     Dates: start: 20060724, end: 20060724
  2. PEG-INTRON [Suspect]
     Indication: HEPATITIS C
     Dosage: 80 MCG, QW; SC, 50 MCG, QW, SC
     Route: 058
     Dates: start: 20060731, end: 20061205
  3. REBETOL [Suspect]
     Indication: HEPATITIS C
     Dosage: 600 MG, QD; PO
     Route: 048
     Dates: start: 20060724, end: 20061211
  4. URSO [Concomitant]
  5. LIPOVAS [Concomitant]
  6. PROMAC [Concomitant]

REACTIONS (9)
  - ARTHRALGIA [None]
  - BACK PAIN [None]
  - BLOOD PRESSURE DECREASED [None]
  - DEPRESSED LEVEL OF CONSCIOUSNESS [None]
  - DRY MOUTH [None]
  - INFLAMMATION [None]
  - METABOLIC ACIDOSIS [None]
  - PLATELET COUNT DECREASED [None]
  - RENAL IMPAIRMENT [None]
